FAERS Safety Report 10390165 (Version 1)
Quarter: 2014Q1

REPORT INFORMATION
  Report Type: Spontaneous
  Country: US (occurrence: None)
  Receive Date: 20140306
  Receipt Date: 20140306
  Transmission Date: 20141002
  Serious: Yes (Other)
  Sender: FDA-Public Use
  Company Number: 163-21880-13014090

PATIENT
  Age: 64 Year
  Sex: Male

DRUGS (9)
  1. REVLIMID (LENALIDOMIDE) (CAPSULES) [Suspect]
     Indication: PLASMA CELL MYELOMA
     Route: 048
     Dates: start: 201211
  2. PROCHLORPERAZINE MALEATE(PROCHLORPERAZINE MALEATE)(TABLETS) [Concomitant]
  3. ALPRAZOLAM(ALPRAZOLAM) (TABLETS) [Concomitant]
  4. LISINOPRIL(LISINOPRIL) (TABLETS) [Concomitant]
  5. FLOMAX(TAMSULOSIN HYDROCHLORIDE)(CAPSULES) [Concomitant]
  6. ACYCLOVIR(ACICLOVIR)(TABLETS) [Concomitant]
  7. CITALOPRAM(CITALOPRAM)(TABLETS) [Concomitant]
  8. ASPIRIN(ACETYLSALICYLIC ACID)(UNKNOWN) [Concomitant]
  9. LEVOTHYROXINE SODIUM(LEVOTHYROXINE SODIUM)(TABLETS) [Concomitant]

REACTIONS (1)
  - Deep vein thrombosis [None]
